FAERS Safety Report 4731165-X (Version None)
Quarter: 2005Q3

REPORT INFORMATION
  Report Type: 
  Country: None (occurrence: None)
  Receive Date: 20050802
  Receipt Date: 20050720
  Transmission Date: 20060218
  Serious: No
  Sender: FDA-Public Use
  Company Number: IT-BOEHRINGER INGELHEIM PHARMACEUTICALS, INC.-2005-DE-02847GD

PATIENT
  Age: 5 Year
  Sex: Male

DRUGS (4)
  1. NEVIRAPINE [Suspect]
     Indication: HIV INFECTION CDC CATEGORY C3
  2. STAVUDINE [Suspect]
     Indication: HIV INFECTION CDC CATEGORY C3
  3. RITONAVIR [Suspect]
     Indication: HIV INFECTION CDC CATEGORY C3
  4. NELFINAVIR [Suspect]
     Indication: HIV INFECTION CDC CATEGORY C3

REACTIONS (2)
  - DRUG INEFFECTIVE [None]
  - THERAPEUTIC PRODUCT INEFFECTIVE [None]
